FAERS Safety Report 8379642-7 (Version None)
Quarter: 2012Q2

REPORT INFORMATION
  Report Type: 
  Country: None (occurrence: None)
  Receive Date: 20120523
  Receipt Date: 20120517
  Transmission Date: 20120825
  Serious: Yes (Other)
  Sender: FDA-Public Use
  Company Number: PHHY2012BR042968

PATIENT
  Sex: Female

DRUGS (2)
  1. METFORMIN HCL [Suspect]
     Dosage: (850/50 MG), UNK
  2. RASILEZ AMLO [Suspect]
     Dosage: (150/5 MG), UNK

REACTIONS (9)
  - STEVENS-JOHNSON SYNDROME [None]
  - ATRIOVENTRICULAR BLOCK [None]
  - CEREBROVASCULAR ACCIDENT [None]
  - HYPERSENSITIVITY [None]
  - PULMONARY EMBOLISM [None]
  - NOSOCOMIAL INFECTION [None]
  - THROAT IRRITATION [None]
  - EMBOLISM [None]
  - COUGH [None]
